FAERS Safety Report 7493426-3 (Version None)
Quarter: 2011Q2

REPORT INFORMATION
  Report Type: 
  Country: None (occurrence: None)
  Receive Date: 20110520
  Receipt Date: 20110428
  Transmission Date: 20111010
  Serious: Yes (Other)
  Sender: FDA-Public Use
  Company Number: US-BAYER-200934378NA

PATIENT
  Sex: Female

DRUGS (10)
  1. SYNTHROID [Concomitant]
     Dosage: UNK
     Route: 048
     Dates: start: 20010101
  2. HEPARIN [Concomitant]
     Dosage: UNK
     Route: 042
     Dates: start: 20020123
  3. AMIODARONE HCL [Concomitant]
  4. AMIODARONE HCL [Concomitant]
     Dosage: 150MG BOLUS X 2
     Route: 042
     Dates: start: 20020123
  5. RED BLOOD CELLS [Concomitant]
     Dosage: 2 UNITS
     Dates: start: 20020123
  6. TRASYLOL [Suspect]
     Dosage: LOADING DOSE OF  200CC THEN 50CC/HOUR INFUSION
     Route: 042
     Dates: start: 20020102, end: 20020102
  7. CARDIZEM [Concomitant]
     Route: 042
  8. AMIODARONE HCL [Concomitant]
     Route: 042
  9. TRASYLOL [Suspect]
     Indication: HEART TRANSPLANT
     Dosage: INITIAL (TEST) DOSE OF 1 ML
     Route: 042
     Dates: start: 20020123, end: 20020123
  10. PROTAMINE SULFATE [Concomitant]
     Dosage: 250MG X 1, 50MG X2
     Route: 042
     Dates: start: 20020123

REACTIONS (13)
  - ANXIETY [None]
  - MULTI-ORGAN FAILURE [None]
  - INJURY [None]
  - PAIN [None]
  - UNEVALUABLE EVENT [None]
  - RENAL FAILURE [None]
  - FEAR [None]
  - ANHEDONIA [None]
  - RENAL INJURY [None]
  - STRESS [None]
  - EMOTIONAL DISTRESS [None]
  - DEPRESSION [None]
  - NERVOUSNESS [None]
